FAERS Safety Report 19223725 (Version 1)
Quarter: 2021Q2

REPORT INFORMATION
  Report Type: Not Available
  Country: None (occurrence: None)
  Receive Date: 20210506
  Receipt Date: 20210506
  Transmission Date: 20210717
  Serious: No
  Sender: FDA-Public Use
  Company Number: US-AKORN-166547

PATIENT
  Sex: Female

DRUGS (1)
  1. ORPHENADRINE CITRATE INJECTION, USP [Suspect]
     Active Substance: ORPHENADRINE CITRATE

REACTIONS (3)
  - Irregular breathing [Unknown]
  - Anxiety [Unknown]
  - Nausea [Unknown]
